FAERS Safety Report 11128949 (Version 4)
Quarter: 2015Q3

REPORT INFORMATION
  Report Type: Spontaneous
  Country: US (occurrence: US)
  Receive Date: 20150521
  Receipt Date: 20150903
  Transmission Date: 20151125
  Serious: Yes (Hospitalization, Disabling, Other)
  Sender: FDA-Public Use
  Company Number: US-009507513-1204USA00517

PATIENT
  Sex: Female

DRUGS (14)
  1. VITAMIN E [Concomitant]
     Active Substance: .ALPHA.-TOCOPHEROL
     Indication: ROUTINE HEALTH MAINTENANCE
     Dosage: 400 IU, QD
     Route: 048
     Dates: start: 1998, end: 2003
  2. PRILOSEC [Concomitant]
     Active Substance: OMEPRAZOLE MAGNESIUM
     Indication: PRODUCT USED FOR UNKNOWN INDICATION
     Dosage: UNK
     Dates: start: 1998
  3. CLIMARA [Concomitant]
     Active Substance: ESTRADIOL
     Indication: OSTEOPENIA
     Dosage: UNK
     Dates: start: 1998, end: 2005
  4. CALCIUM (UNSPECIFIED) (+) VITAMIN D (UNSPECIFIED) [Concomitant]
     Active Substance: CALCIUM CARBONATE\VITAMIN D
     Indication: PRODUCT USED FOR UNKNOWN INDICATION
     Dosage: 600 MG, BID
     Route: 048
     Dates: start: 1985
  5. ASCORBIC ACID. [Concomitant]
     Active Substance: ASCORBIC ACID
     Indication: PRODUCT USED FOR UNKNOWN INDICATION
     Dosage: 1000 MG, QD
     Route: 048
     Dates: start: 1985
  6. FOSAMAX [Suspect]
     Active Substance: ALENDRONATE SODIUM
     Dosage: 70 MG, QW
     Route: 048
     Dates: start: 1999, end: 2001
  7. ESTRACE [Concomitant]
     Active Substance: ESTRADIOL
     Indication: OSTEOPENIA
     Dosage: UNK
     Dates: start: 1998, end: 2005
  8. ALENDRONATE SODIUM. [Suspect]
     Active Substance: ALENDRONATE SODIUM
     Indication: OSTEOPENIA
     Dosage: UNK
     Route: 048
     Dates: start: 2000, end: 200808
  9. ACTONEL [Suspect]
     Active Substance: RISEDRONATE SODIUM
     Indication: OSTEOPENIA
     Dosage: 5 MG, QW
     Route: 048
     Dates: start: 2001, end: 2004
  10. CITRUCEL [Concomitant]
     Active Substance: METHYLCELLULOSE (4000 MPA.S)
     Indication: PRODUCT USED FOR UNKNOWN INDICATION
     Dosage: 20 CC IN 8 OZ H2O, UNK
     Route: 048
     Dates: start: 1995
  11. FOSAMAX [Suspect]
     Active Substance: ALENDRONATE SODIUM
     Indication: OSTEOPENIA
     Dosage: UNK
     Route: 048
     Dates: start: 2000, end: 200808
  12. ACTONEL [Suspect]
     Active Substance: RISEDRONATE SODIUM
     Dosage: 35 MG, QM
     Dates: start: 2004, end: 2011
  13. VITAMIN D [Concomitant]
     Active Substance: CHOLECALCIFEROL
     Indication: PRODUCT USED FOR UNKNOWN INDICATION
     Dosage: 2000 IU, QD
     Dates: start: 1998, end: 2003
  14. INSULIN [Concomitant]
     Active Substance: INSULIN NOS
     Indication: TYPE 1 DIABETES MELLITUS
     Dosage: UNK
     Route: 058
     Dates: start: 1947

REACTIONS (56)
  - Hip arthroplasty [Unknown]
  - Femur fracture [Not Recovered/Not Resolved]
  - Fungal infection [Unknown]
  - Asthma [Unknown]
  - Hyponatraemia [Unknown]
  - Cardiac pacemaker insertion [Unknown]
  - Bronchitis [Unknown]
  - Contusion [Unknown]
  - Coronary artery disease [Unknown]
  - Urinary tract infection [Unknown]
  - Carpal tunnel decompression [Unknown]
  - Back pain [Unknown]
  - Chronic obstructive pulmonary disease [Not Recovered/Not Resolved]
  - Bone disorder [Not Recovered/Not Resolved]
  - Anaemia [Unknown]
  - Intramedullary rod insertion [Unknown]
  - Squamous cell carcinoma [Unknown]
  - Squamous cell carcinoma [Unknown]
  - Hand fracture [Unknown]
  - Restless legs syndrome [Unknown]
  - Arthritis [Unknown]
  - Surgery [Unknown]
  - Infection [Unknown]
  - Chest pain [Unknown]
  - Implantable defibrillator insertion [Unknown]
  - Hip arthroplasty [Unknown]
  - Osteoporosis [Not Recovered/Not Resolved]
  - Hypertension [Unknown]
  - Hypercholesterolaemia [Unknown]
  - Diaphragmatic hernia [Unknown]
  - Cataract [Unknown]
  - Low turnover osteopathy [Not Recovered/Not Resolved]
  - Psoriasis [Unknown]
  - Dehydration [Unknown]
  - Rash [Unknown]
  - Drug ineffective [Unknown]
  - Cerebrovascular accident [Unknown]
  - Intervertebral disc operation [Unknown]
  - Diabetes mellitus inadequate control [Unknown]
  - Acute kidney injury [Unknown]
  - Intervertebral disc disorder [Unknown]
  - Cardiac failure congestive [Unknown]
  - Medical device removal [Unknown]
  - Patella fracture [Unknown]
  - Postoperative renal failure [Unknown]
  - Myocardial infarction [Unknown]
  - Hysterectomy [Unknown]
  - Dysuria [Unknown]
  - Hypertonic bladder [Unknown]
  - Acute myocardial infarction [Unknown]
  - Ischaemic cardiomyopathy [Unknown]
  - Myocardial infarction [Unknown]
  - Acute kidney injury [Recovering/Resolving]
  - Squamous cell carcinoma [Unknown]
  - Hypokalaemia [Unknown]
  - Vertigo [Unknown]

NARRATIVE: CASE EVENT DATE: 1999
